FAERS Safety Report 8960917 (Version 1)
Quarter: 2012Q4

REPORT INFORMATION
  Report Type: Spontaneous
  Country: US (occurrence: None)
  Receive Date: 20121211
  Receipt Date: 20121211
  Transmission Date: 20130627
  Serious: Yes (Hospitalization)
  Sender: FDA-Public Use
  Company Number: None

PATIENT
  Age: 68 Year
  Sex: Female
  Weight: 59.88 kg

DRUGS (1)
  1. CREON 24 [Suspect]
     Indication: PANCREATIC INSUFFICIENCY
     Route: 048
     Dates: start: 20121128, end: 20121129

REACTIONS (7)
  - Pruritus [None]
  - Pruritus [None]
  - Rash [None]
  - Rash [None]
  - Rash [None]
  - Wheezing [None]
  - Dyspnoea [None]
